FAERS Safety Report 5567625-1 (Version None)
Quarter: 2007Q4

REPORT INFORMATION
  Report Type: 
  Country: None (occurrence: None)
  Receive Date: 20071214
  Receipt Date: 20071206
  Transmission Date: 20080405
  Serious: Yes (Hospitalization)
  Sender: FDA-Public Use
  Company Number: 2007SP024446

PATIENT
  Age: 59 Year
  Sex: Male
  Weight: 69.9 kg

DRUGS (1)
  1. TEMODAR [Suspect]
     Indication: GLIOBLASTOMA MULTIFORME
     Dosage: 150 MG/M2; QD
     Dates: start: 20061102

REACTIONS (1)
  - DEEP VEIN THROMBOSIS [None]
